FAERS Safety Report 8462580-9 (Version None)
Quarter: 2012Q2

REPORT INFORMATION
  Report Type: 
  Country: None (occurrence: None)
  Receive Date: 20120625
  Receipt Date: 20120504
  Transmission Date: 20120825
  Serious: No
  Sender: FDA-Public Use
  Company Number: US-BAUSCH-2012BL001628

PATIENT
  Age: 61 Year
  Sex: Female

DRUGS (16)
  1. MULTI-VITAMINS [Concomitant]
  2. LOTEMAX [Concomitant]
     Indication: POSTOPERATIVE CARE
     Route: 047
     Dates: start: 20120101
  3. BESIVANCE [Suspect]
     Indication: POSTOPERATIVE CARE
     Route: 047
     Dates: start: 20120109, end: 20120109
  4. MECLIZINE [Concomitant]
  5. BESIVANCE [Suspect]
     Route: 047
     Dates: start: 20120101, end: 20120101
  6. COQ10 /USA/ [Concomitant]
  7. PRED FORTE [Concomitant]
     Indication: PHOTOREFRACTIVE KERATECTOMY
     Route: 047
     Dates: start: 20120105, end: 20120105
  8. CLONAZEPAM [Concomitant]
  9. VITAMIN B COMPLEX CAP [Concomitant]
  10. LOVAZA [Concomitant]
  11. PRED FORTE [Concomitant]
     Indication: POSTOPERATIVE CARE
     Route: 047
     Dates: start: 20120105
  12. BESIVANCE [Suspect]
     Indication: OFF LABEL USE
     Route: 047
     Dates: start: 20120109, end: 20120109
  13. BESIVANCE [Suspect]
     Route: 047
     Dates: start: 20120101, end: 20120101
  14. ASPIRIN [Concomitant]
  15. METHYLSULFONYLMETHANE [Concomitant]
  16. BROMFENAC [Concomitant]
     Indication: PHOTOREFRACTIVE KERATECTOMY
     Route: 047
     Dates: start: 20120105, end: 20120105

REACTIONS (3)
  - CORNEAL DISORDER [None]
  - IMPAIRED HEALING [None]
  - VISION BLURRED [None]
